FAERS Safety Report 8221226-5 (Version None)
Quarter: 2012Q1

REPORT INFORMATION
  Report Type: 
  Country: None (occurrence: None)
  Receive Date: 20120320
  Receipt Date: 20120309
  Transmission Date: 20120608
  Serious: Yes (Hospitalization)
  Sender: FDA-Public Use
  Company Number: PHHO2012US004058

PATIENT
  Sex: Female

DRUGS (6)
  1. CALCIUM CARBONATE [Concomitant]
  2. MULTI-VITAMIN [Concomitant]
  3. ULTRAM [Concomitant]
  4. SYNTHROID [Concomitant]
  5. ARIXTRA [Concomitant]
  6. GLEEVEC [Suspect]
     Indication: ACUTE MYELOID LEUKAEMIA
     Dosage: 600 MG, QD
     Route: 048
     Dates: start: 20111024, end: 20120308

REACTIONS (4)
  - PERICARDIAL EFFUSION [None]
  - HYPOTENSION [None]
  - PLEURAL EFFUSION [None]
  - PULMONARY EMBOLISM [None]
